FAERS Safety Report 25561010 (Version 2)
Quarter: 2025Q3

REPORT INFORMATION
  Report Type: Report from Study
  Country: US (occurrence: US)
  Receive Date: 20250715
  Receipt Date: 20250721
  Transmission Date: 20251021
  Serious: No
  Sender: BIOGEN
  Company Number: US-BIOGEN-2025BI01316761

PATIENT
  Sex: Female

DRUGS (2)
  1. ZURZUVAE [Suspect]
     Active Substance: ZURANOLONE
     Indication: Perinatal depression
     Dosage: FOR 14 DAYS ATE BEDTIME
     Route: 050
     Dates: start: 20250603
  2. ZURZUVAE [Suspect]
     Active Substance: ZURANOLONE
     Dosage: FOR 7 DAYS AT EVENING
     Route: 050

REACTIONS (2)
  - Tremor [Unknown]
  - Dizziness [Unknown]
